FAERS Safety Report 18498346 (Version 1)
Quarter: 2020Q4

REPORT INFORMATION
  Report Type: Spontaneous
  Country: DE (occurrence: DE)
  Receive Date: 20201112
  Receipt Date: 20201112
  Transmission Date: 20210114
  Serious: Yes (Hospitalization)
  Sender: FDA-Public Use
  Company Number: DE-TEVA-2020-DE-1847875

PATIENT
  Age: 72 Year
  Sex: Female
  Weight: 43 kg

DRUGS (4)
  1. FOLINSAURE [Suspect]
     Active Substance: LEUCOVORIN
     Indication: CHEMOTHERAPY SIDE EFFECT PROPHYLAXIS
     Dosage: 10.00-11.00 A.M. UNIT DOSE 552MG
     Route: 042
  2. DEXAMETHASON [Concomitant]
     Active Substance: DEXAMETHASONE
     Indication: CHEMOTHERAPY SIDE EFFECT PROPHYLAXIS
     Dosage: 9.30AM-9.45PM, UNIT DOSE 8MG
     Route: 042
  3. APREPITANT. [Concomitant]
     Active Substance: APREPITANT
     Indication: CHEMOTHERAPY SIDE EFFECT PROPHYLAXIS
     Dosage: 09.00-09.10 A.M.UNIT DOSE :80MG
     Route: 048
  4. 5-FU [Concomitant]
     Active Substance: FLUOROURACIL
     Indication: CHEMOTHERAPY

REACTIONS (5)
  - Vomiting [Recovered/Resolved]
  - Nausea [Recovered/Resolved]
  - Chest discomfort [Recovered/Resolved]
  - Eyelid oedema [Recovered/Resolved]
  - Hyperaemia [Recovered/Resolved]

NARRATIVE: CASE EVENT DATE: 20201014
